FAERS Safety Report 16381552 (Version 1)
Quarter: 2019Q2

REPORT INFORMATION
  Report Type: Report from Study
  Country: None (occurrence: US)
  Receive Date: 20190603
  Receipt Date: 20190603
  Transmission Date: 20190711
  Serious: Yes (Hospitalization)
  Sender: FDA-Public Use
  Company Number: US-ABBVIE-19K-163-2804945-00

PATIENT
  Age: 71 Year
  Sex: Male

DRUGS (1)
  1. VENCLEXTA [Suspect]
     Active Substance: VENETOCLAX
     Indication: ACUTE MYELOID LEUKAEMIA
     Route: 048
     Dates: start: 20190305, end: 2019

REACTIONS (2)
  - Hospitalisation [Recovered/Resolved]
  - Hospice care [Not Recovered/Not Resolved]

NARRATIVE: CASE EVENT DATE: 20190530
